FAERS Safety Report 11616214 (Version 1)
Quarter: 2015Q4

REPORT INFORMATION
  Report Type: Spontaneous
  Country: FR (occurrence: FR)
  Receive Date: 20151009
  Receipt Date: 20151009
  Transmission Date: 20160304
  Serious: Yes (Other)
  Sender: FDA-Public Use
  Company Number: FR-SA-2015SA148749

PATIENT
  Age: 93 Year
  Sex: Female

DRUGS (6)
  1. ENOXAPARIN SODIUM. [Suspect]
     Active Substance: ENOXAPARIN SODIUM
     Route: 048
     Dates: start: 20150820
  2. KARDEGIC [Suspect]
     Active Substance: ASPIRIN LYSINE
     Route: 048
     Dates: end: 20150907
  3. AMLOR [Suspect]
     Active Substance: AMLODIPINE BESYLATE
     Route: 048
     Dates: start: 20150820
  4. CLAMOXYL [Suspect]
     Active Substance: AMOXICILLIN\CLAVULANIC ACID
     Indication: ERYSIPELAS
     Route: 048
     Dates: start: 20150822, end: 20150907
  5. BISOPROLOL FUMARATE. [Suspect]
     Active Substance: BISOPROLOL FUMARATE
     Indication: ATRIAL FIBRILLATION
     Route: 048
     Dates: start: 20150821
  6. MACROGOL [Suspect]
     Active Substance: POLYETHYLENE GLYCOLS
     Route: 048
     Dates: start: 20150823

REACTIONS (1)
  - Haemolytic anaemia [Not Recovered/Not Resolved]
